FAERS Safety Report 18285579 (Version 1)
Quarter: 2020Q3

REPORT INFORMATION
  Report Type: Spontaneous
  Country: US (occurrence: US)
  Receive Date: 20200919
  Receipt Date: 20200919
  Transmission Date: 20201103
  Serious: No
  Sender: FDA-Public Use
  Company Number: US-AUROBINDO-AUR-APL-2020-039836

PATIENT
  Age: 80 Year
  Sex: Female
  Weight: 68.02 kg

DRUGS (1)
  1. IBUPROFEN+PSEUDOEPHEDRINE HYDROCHLORIDE [Suspect]
     Active Substance: IBUPROFEN\PSEUDOEPHEDRINE HYDROCHLORIDE
     Indication: NASAL CONGESTION
     Dosage: 1 DOSAGE FORM
     Route: 048
     Dates: start: 20200807, end: 20200807

REACTIONS (3)
  - Oral discomfort [Unknown]
  - Product taste abnormal [Unknown]
  - Tongue discomfort [Unknown]

NARRATIVE: CASE EVENT DATE: 20200807
